FAERS Safety Report 5361746-4 (Version None)
Quarter: 2007Q2

REPORT INFORMATION
  Report Type: 
  Country: None (occurrence: None)
  Receive Date: 20070615
  Receipt Date: 20070604
  Transmission Date: 20071010
  Serious: Yes (Hospitalization)
  Sender: FDA-Public Use
  Company Number: 2007AL002211

PATIENT
  Age: 50 Year
  Sex: Male

DRUGS (8)
  1. CYCLOBENZAPRINE HCL [Suspect]
     Indication: DRUG USE FOR UNKNOWN INDICATION
  2. AMITRIPTYLINE HCL [Concomitant]
  3. METOPROLOL SUCCINATE [Concomitant]
  4. NIFEDIPINE [Concomitant]
  5. OMEPRAZOLE [Concomitant]
  6. SERTRALINE [Concomitant]
  7. ASPIRIN [Concomitant]
  8. INSULIN [Concomitant]

REACTIONS (9)
  - ANTIDEPRESSANT DRUG LEVEL ABOVE THERAPEUTIC [None]
  - ATRIOVENTRICULAR BLOCK [None]
  - ATRIOVENTRICULAR BLOCK COMPLETE [None]
  - BRADYCARDIA [None]
  - CARDIAC ARREST [None]
  - ENZYME ABNORMALITY [None]
  - GENE MUTATION [None]
  - PROCEDURAL COMPLICATION [None]
  - PROCEDURAL HYPOTENSION [None]
